FAERS Safety Report 6301231-6 (Version None)
Quarter: 2009Q3

REPORT INFORMATION
  Report Type: 
  Country: None (occurrence: None)
  Receive Date: 20090807
  Receipt Date: 20090806
  Transmission Date: 20100115
  Serious: Yes (Other)
  Sender: FDA-Public Use
  Company Number: US-WYE-H09973209

PATIENT
  Sex: Male

DRUGS (9)
  1. ZOSYN [Suspect]
     Indication: ALLERGENIC DESENSITISATION PROCEDURE
     Dosage: 0.02 MG THEN DOSE WAS DOUBLED EVERY 15 MINUTES FOR A TOTAL DOSE OF 4500 MG
     Route: 042
     Dates: start: 20090625, end: 20090626
  2. ZOSYN [Suspect]
     Indication: STAPHYLOCOCCAL INFECTION
  3. ZOSYN [Suspect]
     Indication: BURKHOLDERIA CEPACIA COMPLEX INFECTION
  4. ZOSYN [Suspect]
     Indication: PSEUDOMONAS INFECTION
  5. PANCREASE [Concomitant]
     Indication: CYSTIC FIBROSIS
     Dosage: UNKNOWN
  6. INSULIN [Concomitant]
     Indication: DIABETES MELLITUS
     Dosage: UNKNOWN
  7. PROTONIX [Concomitant]
     Indication: GASTROOESOPHAGEAL REFLUX DISEASE
     Dosage: UNKNOWN
     Route: 048
  8. ADVAIR HFA [Concomitant]
     Indication: CYSTIC FIBROSIS
     Dosage: UNKNOWN
  9. COMBIVENT [Concomitant]
     Indication: CYSTIC FIBROSIS
     Dosage: UNKNOWN

REACTIONS (2)
  - HEART RATE INCREASED [None]
  - MYALGIA [None]
